FAERS Safety Report 4445186-8 (Version None)
Quarter: 2004Q3

REPORT INFORMATION
  Report Type: 
  Country: None (occurrence: None)
  Receive Date: 20040819
  Receipt Date: 20040304
  Transmission Date: 20050211
  Serious: Yes (Other)
  Sender: FDA-Public Use
  Company Number: 2004015185

PATIENT
  Sex: Female

DRUGS (1)
  1. NORVASC [Suspect]
     Indication: CARDIOVASCULAR DISORDER

REACTIONS (1)
  - MYOCARDIAL INFARCTION [None]
